FAERS Safety Report 5399424-8 (Version None)
Quarter: 2007Q3

REPORT INFORMATION
  Report Type: 
  Country: None (occurrence: None)
  Receive Date: 20070727
  Receipt Date: 20070718
  Transmission Date: 20080115
  Serious: Yes (Hospitalization)
  Sender: FDA-Public Use
  Company Number: FR-PURDUE-GBR_2007_0003037

PATIENT
  Age: 83 Year
  Sex: Male

DRUGS (2)
  1. OXYCONTIN [Suspect]
     Indication: CANCER PAIN
     Dosage: 30 MG, PRN
     Route: 048
  2. DURAGESIC-100 [Suspect]
     Indication: CANCER PAIN
     Dosage: 100 MCG, Q1H
     Route: 048

REACTIONS (2)
  - DRUG ERUPTION [None]
  - PYREXIA [None]
